FAERS Safety Report 10281103 (Version 1)
Quarter: 2014Q3

REPORT INFORMATION
  Report Type: Spontaneous
  Country: US (occurrence: None)
  Receive Date: 20140702
  Receipt Date: 20140702
  Transmission Date: 20150326
  Serious: Yes (Other)
  Sender: FDA-Public Use
  Company Number: None

PATIENT
  Age: 47 Year
  Sex: Female
  Weight: 53.52 kg

DRUGS (2)
  1. YAZMIN BIRTH CONTROL [Concomitant]
  2. LOTRIMIN ULTRA [Suspect]
     Active Substance: BUTENAFINE HYDROCHLORIDE
     Indication: TINEA PEDIS
     Dosage: UNKNOWN, APPLY CREAM 2 TIMES/DAY, 2 TIMES DAILY FOR FIRST WEEK OR 4 WEEKS ONCE A DAY, ON THE SKIN?
     Dates: start: 20140627, end: 20140628

REACTIONS (7)
  - Burning sensation [None]
  - Chemical injury [None]
  - Application site pruritus [None]
  - Peripheral swelling [None]
  - Abasia [None]
  - Skin exfoliation [None]
  - Skin ulcer [None]

NARRATIVE: CASE EVENT DATE: 20140628
